FAERS Safety Report 9105522 (Version 1)
Quarter: 2013Q1

REPORT INFORMATION
  Report Type: Spontaneous
  Country: CA (occurrence: CA)
  Receive Date: 20130221
  Receipt Date: 20130221
  Transmission Date: 20140127
  Serious: Yes (Hospitalization)
  Sender: FDA-Public Use
  Company Number: CA-AMGEN-CANSP2013009748

PATIENT
  Age: 61 Year
  Sex: Female

DRUGS (2)
  1. XGEVA [Suspect]
     Indication: BREAST CANCER
     Dosage: UNK
     Dates: start: 20120404
  2. XGEVA [Suspect]

REACTIONS (3)
  - White blood cell count decreased [Recovering/Resolving]
  - Haemorrhage [Recovering/Resolving]
  - Pneumonia [Recovering/Resolving]
